FAERS Safety Report 4319346-0 (Version None)
Quarter: 2004Q1

REPORT INFORMATION
  Report Type: 
  Country: None (occurrence: None)
  Receive Date: 20040319
  Receipt Date: 20040313
  Transmission Date: 20041129
  Serious: Yes (Death)
  Sender: FDA-Public Use
  Company Number: PHEH2004US03027

PATIENT
  Age: 28 Year
  Sex: Female

DRUGS (1)
  1. TRILEPTAL [Suspect]

REACTIONS (2)
  - DEATH [None]
  - HYPERSOMNIA [None]
